FAERS Safety Report 9339790 (Version 1)
Quarter: 2013Q2

REPORT INFORMATION
  Report Type: Report from Study
  Country: US (occurrence: US)
  Receive Date: 20130610
  Receipt Date: 20130610
  Transmission Date: 20140414
  Serious: Yes (Other)
  Sender: FDA-Public Use
  Company Number: PHEH2013US012362

PATIENT
  Sex: Female
  Weight: 108.84 kg

DRUGS (3)
  1. GLEEVEC [Suspect]
     Dosage: 600 MG, QD (ONE + HALF)
     Route: 048
     Dates: end: 20130528
  2. PREVACID [Concomitant]
     Dosage: 15 MG, UNK
  3. HYDROCHLOROTH [Concomitant]
     Dosage: 25 MG, UNK

REACTIONS (2)
  - Pelvic neoplasm [Unknown]
  - Vascular neoplasm [Unknown]
